FAERS Safety Report 7303002-0 (Version None)
Quarter: 2011Q1

REPORT INFORMATION
  Report Type: 
  Country: None (occurrence: None)
  Receive Date: 20110221
  Receipt Date: 20110210
  Transmission Date: 20110831
  Serious: Yes (Hospitalization, Other)
  Sender: FDA-Public Use
  Company Number: CZ-BAXTER-2011BH003575

PATIENT
  Age: 79 Year
  Sex: Male
  Weight: 72 kg

DRUGS (1)
  1. GAMMAGARD S/D [Suspect]
     Indication: THROMBOCYTOPENIA
     Route: 042
     Dates: start: 20110127, end: 20110127

REACTIONS (5)
  - CIRCULATORY COLLAPSE [None]
  - ATRIAL FIBRILLATION [None]
  - CHILLS [None]
  - LOSS OF CONSCIOUSNESS [None]
  - OXYGEN SATURATION DECREASED [None]
